FAERS Safety Report 5802032-5 (Version None)
Quarter: 2008Q3

REPORT INFORMATION
  Report Type: 
  Country: None (occurrence: None)
  Receive Date: 20080707
  Receipt Date: 20080625
  Transmission Date: 20090109
  Serious: Yes (Death, Hospitalization)
  Sender: FDA-Public Use
  Company Number: AR-PFIZER INC-2008044364

PATIENT
  Age: 84 Year
  Sex: Female

DRUGS (5)
  1. ALDACTONE [Suspect]
     Indication: OEDEMA
     Route: 048
  2. DIGOXIN [Concomitant]
     Route: 048
  3. SINTROM [Concomitant]
     Route: 048
  4. ALL OTHER THERAPEUTIC PRODUCTS [Concomitant]
     Route: 048
  5. GENERAL NUTRIENTS [Concomitant]
     Route: 048

REACTIONS (6)
  - APATHY [None]
  - CARDIO-RESPIRATORY ARREST [None]
  - CONFUSIONAL STATE [None]
  - INCREASED UPPER AIRWAY SECRETION [None]
  - LETHARGY [None]
  - SOMNOLENCE [None]
